FAERS Safety Report 8304777-4 (Version None)
Quarter: 2012Q2

REPORT INFORMATION
  Report Type: 
  Country: None (occurrence: None)
  Receive Date: 20120423
  Receipt Date: 20120416
  Transmission Date: 20120825
  Serious: Yes (Other)
  Sender: FDA-Public Use
  Company Number: CA-ROCHE-1060379

PATIENT
  Sex: Female
  Weight: 74.91 kg

DRUGS (10)
  1. VITAMIN D [Concomitant]
     Route: 065
  2. CALCIUM [Concomitant]
     Route: 065
  3. DIPHENHYDRAMINE HCL [Concomitant]
     Indication: PREMEDICATION
     Route: 048
     Dates: start: 20111222, end: 20111222
  4. ASCORBIC ACID [Concomitant]
     Route: 065
  5. SOLUCORT [Concomitant]
     Indication: PREMEDICATION
     Route: 042
     Dates: start: 20111222, end: 20111222
  6. FOLIC ACID [Concomitant]
     Route: 065
  7. MABTHERA [Suspect]
     Indication: RHEUMATOID ARTHRITIS
     Route: 042
     Dates: start: 20080212
  8. METHOTREXATE [Concomitant]
     Route: 065
  9. IRON [Concomitant]
     Route: 065
  10. ACETAMINOPHEN [Concomitant]
     Indication: PREMEDICATION
     Route: 048
     Dates: start: 20111222, end: 20111222

REACTIONS (1)
  - UPPER LIMB FRACTURE [None]
